FAERS Safety Report 9727007 (Version 1)
Quarter: 2013Q4

REPORT INFORMATION
  Report Type: Spontaneous
  Country: US (occurrence: US)
  Receive Date: 20131203
  Receipt Date: 20131203
  Transmission Date: 20140711
  Serious: No
  Sender: FDA-Public Use
  Company Number: US-NOVEN-13US006929

PATIENT
  Sex: Male

DRUGS (1)
  1. FENTANYL [Suspect]
     Indication: PAIN
     Dosage: 25 MG/HR EVERY 72 HOURS
     Route: 062
     Dates: start: 20130523

REACTIONS (3)
  - Dysphonia [Not Recovered/Not Resolved]
  - Flushing [Not Recovered/Not Resolved]
  - Somnolence [Not Recovered/Not Resolved]
